FAERS Safety Report 18432417 (Version 1)
Quarter: 2020Q4

REPORT INFORMATION
  Report Type: Spontaneous
  Country: CN (occurrence: CN)
  Receive Date: 20201027
  Receipt Date: 20201027
  Transmission Date: 20210114
  Serious: Yes (Other)
  Sender: FDA-Public Use
  Company Number: CN-PFIZER INC-2020413481

PATIENT
  Age: 9 Year
  Sex: Male
  Weight: 29 kg

DRUGS (2)
  1. METHOTREXATE. [Suspect]
     Active Substance: METHOTREXATE
     Indication: ACUTE LYMPHOCYTIC LEUKAEMIA RECURRENT
     Dosage: 1.6 G, 1X/DAY
     Route: 041
     Dates: start: 20201007, end: 20201007
  2. DOLASETRON MESYLATE [Concomitant]
     Active Substance: DOLASETRON MESYLATE
     Indication: ANTIEMETIC SUPPORTIVE CARE
     Dosage: 25 MG, 1X/DAY
     Route: 041
     Dates: start: 20201007, end: 20201007

REACTIONS (2)
  - Oral pain [Recovering/Resolving]
  - Mucosal ulceration [Recovering/Resolving]

NARRATIVE: CASE EVENT DATE: 20201010
